FAERS Safety Report 23172780 (Version 2)
Quarter: 2023Q4

REPORT INFORMATION
  Report Type: Report from Study
  Country: US (occurrence: US)
  Receive Date: 20231110
  Receipt Date: 20231222
  Transmission Date: 20240109
  Serious: Yes (Other)
  Sender: FDA-Public Use
  Company Number: US-GILEAD-2023-0650779

PATIENT
  Sex: Female

DRUGS (1)
  1. SACITUZUMAB GOVITECAN-HZIY [Suspect]
     Active Substance: SACITUZUMAB GOVITECAN-HZIY
     Indication: Breast cancer female
     Dosage: 1075 MG ON DAYS 1 AND 8 EVERY 21 DAYS
     Route: 042
     Dates: start: 20230925

REACTIONS (3)
  - Metastases to central nervous system [Unknown]
  - Tongue discomfort [Unknown]
  - Dry mouth [Unknown]
